FAERS Safety Report 4820237-7 (Version None)
Quarter: 2005Q4

REPORT INFORMATION
  Report Type: 
  Country: None (occurrence: None)
  Receive Date: 20051104
  Receipt Date: 20051031
  Transmission Date: 20060501
  Serious: Yes (Death)
  Sender: FDA-Public Use
  Company Number: 2005UW16461

PATIENT
  Age: 78 Year
  Sex: Female

DRUGS (2)
  1. ARIMIDEX [Suspect]
     Indication: BREAST CANCER FEMALE
     Route: 048
     Dates: start: 20050701
  2. MONOCORDIL [Concomitant]
     Indication: HYPERTENSION
     Route: 048

REACTIONS (2)
  - RESPIRATORY ARREST [None]
  - RESPIRATORY FAILURE [None]
